FAERS Safety Report 4767204-X (Version None)
Quarter: 2005Q3

REPORT INFORMATION
  Report Type: 
  Country: None (occurrence: None)
  Receive Date: 20050912
  Receipt Date: 20050912
  Transmission Date: 20060218
  Serious: Yes (Other)
  Sender: FDA-Public Use
  Company Number: None

PATIENT
  Age: 73 Year
  Sex: Male
  Weight: 71.2147 kg

DRUGS (1)
  1. TAXOL [Suspect]
     Dates: start: 20041027

REACTIONS (3)
  - ANAEMIA OF CHRONIC DISEASE [None]
  - GAMMOPATHY [None]
  - RED BLOOD CELL SEDIMENTATION RATE INCREASED [None]
